FAERS Safety Report 9839808 (Version 1)
Quarter: 2014Q1

REPORT INFORMATION
  Report Type: Spontaneous
  Country: AU (occurrence: AU)
  Receive Date: 20140124
  Receipt Date: 20140124
  Transmission Date: 20141002
  Serious: No
  Sender: FDA-Public Use
  Company Number: AU-009507513-1401AUS005277

PATIENT
  Sex: Female

DRUGS (1)
  1. MOMETASONE FUROATE [Suspect]
     Route: 001

REACTIONS (2)
  - Ear pain [Unknown]
  - Incorrect route of drug administration [Unknown]
